FAERS Safety Report 8430036-5 (Version None)
Quarter: 2012Q2

REPORT INFORMATION
  Report Type: 
  Country: None (occurrence: None)
  Receive Date: 20120612
  Receipt Date: 20120602
  Transmission Date: 20120825
  Serious: Yes (Hospitalization, Other)
  Sender: FDA-Public Use
  Company Number: BR-ROCHE-1074864

PATIENT
  Age: 38 Year
  Sex: Female
  Weight: 58 kg

DRUGS (4)
  1. PREDNISONE [Concomitant]
     Indication: RHEUMATOID ARTHRITIS
     Route: 048
     Dates: start: 19900101
  2. METHOTREXATE [Concomitant]
     Indication: RHEUMATOID ARTHRITIS
     Route: 058
     Dates: start: 20000101
  3. MABTHERA [Suspect]
     Indication: RHEUMATOID ARTHRITIS
     Route: 042
     Dates: start: 20120301, end: 20120401
  4. LEFLUNOMIDE [Concomitant]
     Indication: RHEUMATOID ARTHRITIS
     Route: 048
     Dates: start: 20090101

REACTIONS (7)
  - CONFUSIONAL STATE [None]
  - URINARY TRACT INFECTION [None]
  - UNEVALUABLE EVENT [None]
  - PSYCHOMOTOR HYPERACTIVITY [None]
  - CENTRAL NERVOUS SYSTEM LESION [None]
  - DELIRIUM [None]
  - PLEOCYTOSIS [None]
